FAERS Safety Report 12772834 (Version 1)
Quarter: 2016Q3

REPORT INFORMATION
  Report Type: Spontaneous
  Country: US (occurrence: US)
  Receive Date: 20160922
  Receipt Date: 20160922
  Transmission Date: 20161109
  Serious: No
  Sender: FDA-Public Use
  Company Number: US-GLAXOSMITHKLINE-US2016137779

PATIENT
  Age: 83 Year
  Sex: Female

DRUGS (1)
  1. PREVACID 24 HR [Suspect]
     Active Substance: LANSOPRAZOLE
     Indication: BOWEL MOVEMENT IRREGULARITY
     Dosage: UNK, ONE, AN HOUR BEFORE I EAT
     Route: 048

REACTIONS (2)
  - Incorrect drug administration duration [Unknown]
  - Off label use [Unknown]
